FAERS Safety Report 19518393 (Version 1)
Quarter: 2021Q3

REPORT INFORMATION
  Report Type: Spontaneous
  Country: US (occurrence: US)
  Receive Date: 20210709
  Receipt Date: 20210709
  Transmission Date: 20211014
  Serious: No
  Sender: FDA-Public Use
  Company Number: None

PATIENT
  Age: 66 Year
  Sex: Male
  Weight: 79.2 kg

DRUGS (1)
  1. CIPROFLOXACIN WW928 [Suspect]
     Active Substance: CIPROFLOXACIN
     Indication: URINARY TRACT INFECTION
     Dosage: ?          QUANTITY:28 TABLET(S);?
     Route: 048
     Dates: start: 20210629, end: 20210709

REACTIONS (5)
  - Paraesthesia [None]
  - Muscle disorder [None]
  - Tendon disorder [None]
  - Asthenia [None]
  - Coordination abnormal [None]

NARRATIVE: CASE EVENT DATE: 20210706
